FAERS Safety Report 13559824 (Version 1)
Quarter: 2017Q2

REPORT INFORMATION
  Report Type: Spontaneous
  Country: HR (occurrence: HR)
  Receive Date: 20170518
  Receipt Date: 20170518
  Transmission Date: 20170830
  Serious: Yes (Other)
  Sender: FDA-Public Use
  Company Number: HR-PFIZER INC-2017215872

PATIENT
  Age: 40 Year
  Sex: Male

DRUGS (5)
  1. SERTRALINE HCL [Suspect]
     Active Substance: SERTRALINE HYDROCHLORIDE
     Dosage: 30 TABLETS
     Route: 048
     Dates: start: 20170202, end: 20170202
  2. NORMABEL [Suspect]
     Active Substance: DIAZEPAM
     Dosage: 30 TABLETS
     Route: 048
     Dates: start: 20170202, end: 20170202
  3. OLANZAPINE. [Suspect]
     Active Substance: OLANZAPINE
     Dosage: 28 TABLETS
     Route: 048
     Dates: start: 20170202, end: 20170202
  4. RUPURUT [Suspect]
     Active Substance: HYDROTALCITE
     Dosage: 5000 MG (10 TABLETS)
     Route: 048
     Dates: start: 20170202, end: 20170202
  5. SANVAL [Suspect]
     Active Substance: ZOLPIDEM TARTRATE
     Dosage: UNKNOWN QUANTITY
     Route: 048
     Dates: start: 20170202, end: 20170202

REACTIONS (4)
  - Intentional overdose [Unknown]
  - Respiratory failure [Unknown]
  - Somnolence [Unknown]
  - Suicide attempt [Unknown]

NARRATIVE: CASE EVENT DATE: 20170202
